FAERS Safety Report 21683233 (Version 1)
Quarter: 2022Q4

REPORT INFORMATION
  Report Type: Spontaneous
  Country: US (occurrence: None)
  Receive Date: 20221203
  Receipt Date: 20221203
  Transmission Date: 20230112
  Serious: Yes (Other)
  Sender: FDA-Public Use
  Company Number: None

PATIENT
  Age: 63 Year
  Sex: Male
  Weight: 108.9 kg

DRUGS (10)
  1. HYDRALAZINE [Suspect]
     Active Substance: HYDRALAZINE HYDROCHLORIDE
     Indication: Blood pressure measurement
     Dosage: OTHER QUANTITY : 1 TABLET(S);?FREQUENCY : EVERY 8 HOURS;?
     Route: 048
     Dates: start: 20220301, end: 20221201
  2. AMLODIPINE [Concomitant]
     Active Substance: AMLODIPINE BESYLATE
  3. LOSARTAN [Concomitant]
     Active Substance: LOSARTAN
  4. METFORMIN [Concomitant]
     Active Substance: METFORMIN HYDROCHLORIDE
  5. JANUVIA [Concomitant]
     Active Substance: SITAGLIPTIN PHOSPHATE
  6. GEMFIBROZIL [Concomitant]
  7. FUROSEMIDE [Concomitant]
     Active Substance: FUROSEMIDE
  8. ROSUVASTATIN [Concomitant]
     Active Substance: ROSUVASTATIN
  9. ENTERIC ASPIRIN [Concomitant]
     Active Substance: ASPIRIN
  10. FISH OIL [Concomitant]

REACTIONS (13)
  - Malaise [None]
  - Upper-airway cough syndrome [None]
  - Cough [None]
  - Fatigue [None]
  - Arthralgia [None]
  - Pyrexia [None]
  - Chills [None]
  - Hyperhidrosis [None]
  - Malaise [None]
  - Decreased appetite [None]
  - Weight decreased [None]
  - Anaemia [None]
  - Inflammation [None]

NARRATIVE: CASE EVENT DATE: 20220922
